FAERS Safety Report 9033908 (Version 1)
Quarter: 2013Q1

REPORT INFORMATION
  Report Type: Spontaneous
  Country: US (occurrence: US)
  Receive Date: 20130128
  Receipt Date: 20130128
  Transmission Date: 20140127
  Serious: Yes (Death, Hospitalization, Other)
  Sender: FDA-Public Use
  Company Number: US-AMGEN-USASP2012045338

PATIENT
  Sex: Female

DRUGS (11)
  1. ENBREL [Suspect]
     Indication: PRODUCT USED FOR UNKNOWN INDICATION
     Dosage: 50 MG, QWK
     Route: 058
  2. LYRICA [Concomitant]
     Dosage: 100 MG, UNK
  3. ROCALTROL [Concomitant]
     Dosage: 0.25 MUG, UNK
  4. ACTONEL [Concomitant]
     Dosage: 5 MG, UNK
  5. GLUCOSAMIN CHONDR [Concomitant]
     Dosage: 500-250 UNK, UNK
  6. GLUCOSAMIN CHONDR [Concomitant]
  7. REQUIP [Concomitant]
     Dosage: 4 MG, UNK
  8. CYTOMEL [Concomitant]
     Dosage: 25 MUG, UNK
  9. CALCITRIOL [Concomitant]
     Dosage: 0.25 MUG, UNK
  10. LEVOTHYROXIN [Concomitant]
     Dosage: 25 MUG, UNK
  11. PREDNISONE [Concomitant]
     Dosage: 1 MG, UNK

REACTIONS (6)
  - Death [Fatal]
  - Abdominal pain upper [Unknown]
  - Thrombosis [Unknown]
  - Gastrointestinal haemorrhage [Unknown]
  - Clostridium difficile infection [Unknown]
  - Fall [Unknown]
